FAERS Safety Report 9128986 (Version 1)
Quarter: 2013Q1

REPORT INFORMATION
  Report Type: Spontaneous
  Country: FR (occurrence: FR)
  Receive Date: 20130125
  Receipt Date: 20130125
  Transmission Date: 20140127
  Serious: Yes (Hospitalization)
  Sender: FDA-Public Use
  Company Number: FR-GLAXOSMITHKLINE-B0860235A

PATIENT
  Age: 2 Year
  Sex: Male

DRUGS (1)
  1. NIQUITIN [Suspect]
     Dosage: 1.5MG NINE TIMES PER DAY
     Route: 048
     Dates: start: 20130114, end: 20130114

REACTIONS (5)
  - Hypotonia [Recovered/Resolved]
  - Pallor [Recovered/Resolved]
  - Somnolence [Recovered/Resolved]
  - Accidental exposure to product [Unknown]
  - Accidental exposure to product by child [None]
